FAERS Safety Report 6518948-0 (Version None)
Quarter: 2009Q4

REPORT INFORMATION
  Report Type: 
  Country: None (occurrence: None)
  Receive Date: 20091228
  Receipt Date: 20091216
  Transmission Date: 20100525
  Serious: Yes (Hospitalization)
  Sender: FDA-Public Use
  Company Number: US-SANOFI-AVENTIS-2009SA009758

PATIENT
  Age: 75 Year
  Sex: Male

DRUGS (5)
  1. MULTAQ [Suspect]
     Indication: ATRIAL FIBRILLATION
     Route: 048
     Dates: start: 20091208, end: 20091211
  2. OPIOIDS [Suspect]
     Route: 065
     Dates: start: 20091201
  3. PRILOSEC [Concomitant]
  4. METAMUCIL [Concomitant]
  5. METOPROLOL TARTRATE [Concomitant]

REACTIONS (2)
  - CONSTIPATION [None]
  - ILEUS [None]
